FAERS Safety Report 7999295-7 (Version None)
Quarter: 2011Q4

REPORT INFORMATION
  Report Type: 
  Country: None (occurrence: None)
  Receive Date: 20111221
  Receipt Date: 20111215
  Transmission Date: 20120403
  Serious: Yes (Other)
  Sender: FDA-Public Use
  Company Number: PHHY2011GB107634

PATIENT
  Age: 31 Year
  Sex: Female

DRUGS (1)
  1. CARBOPLATIN [Suspect]

REACTIONS (1)
  - ACCIDENTAL EXPOSURE [None]
